FAERS Safety Report 6540464-0 (Version None)
Quarter: 2010Q1

REPORT INFORMATION
  Report Type: 
  Country: None (occurrence: None)
  Receive Date: 20100113
  Receipt Date: 20100106
  Transmission Date: 20100710
  Serious: Yes (Life-Threatening, Hospitalization)
  Sender: FDA-Public Use
  Company Number: SPV1-2009-02304

PATIENT
  Age: 56 Year
  Sex: Male

DRUGS (2)
  1. FOSRENOL [Suspect]
     Indication: HYPERPHOSPHATAEMIA
     Dosage: ORAL
     Route: 048
     Dates: start: 20090724, end: 20090824
  2. CALTAN   (CALCIUM CARBONATE) [Concomitant]

REACTIONS (5)
  - BLOOD PRESSURE DECREASED [None]
  - GASTRIC ULCER HAEMORRHAGE [None]
  - HAEMODIALYSIS [None]
  - HAEMOGLOBIN DECREASED [None]
  - MELAENA [None]
